FAERS Safety Report 23040795 (Version 1)
Quarter: 2023Q4

REPORT INFORMATION
  Report Type: Spontaneous
  Country: US (occurrence: US)
  Receive Date: 20231006
  Receipt Date: 20231006
  Transmission Date: 20240110
  Serious: No
  Sender: FDA-Public Use
  Company Number: US-SANDOZ-SDZ2023US038994

PATIENT
  Sex: Female

DRUGS (3)
  1. MELOXICAM [Suspect]
     Active Substance: MELOXICAM
     Indication: Psoriatic arthropathy
     Route: 065
  2. MINOCYCLINE [Suspect]
     Active Substance: MINOCYCLINE HYDROCHLORIDE
     Indication: Psoriatic arthropathy
     Route: 065
  3. SPIRONOLACTONE [Suspect]
     Active Substance: SPIRONOLACTONE
     Indication: Psoriatic arthropathy
     Route: 065

REACTIONS (9)
  - Plantar fasciitis [Unknown]
  - Acne [Unknown]
  - Dermatitis [Unknown]
  - Pain in extremity [Unknown]
  - Fasciitis [Unknown]
  - Enthesophyte [Unknown]
  - Tendon disorder [Unknown]
  - Arthralgia [Unknown]
  - Drug ineffective [Unknown]
